FAERS Safety Report 18905522 (Version 1)
Quarter: 2021Q1

REPORT INFORMATION
  Report Type: Spontaneous
  Country: US (occurrence: US)
  Receive Date: 20210217
  Receipt Date: 20210217
  Transmission Date: 20210420
  Serious: No
  Sender: FDA-Public Use
  Company Number: US-IMMUNOMEDICS, INC.-2020IMMU000667

PATIENT
  Sex: Female

DRUGS (2)
  1. TRODELVY [Suspect]
     Active Substance: SACITUZUMAB GOVITECAN-HZIY
     Indication: BREAST CANCER
     Dosage: 692 MG, DAY 1 AND 8 OF 21 DAY CYCLE
     Route: 042
  2. TRODELVY [Suspect]
     Active Substance: SACITUZUMAB GOVITECAN-HZIY
     Indication: METASTASES TO BONE
     Dosage: 692 MG, DAY 1 AND 8 OF 21 DAY CYCLE
     Route: 042
     Dates: start: 20201030, end: 20201030

REACTIONS (1)
  - Neutrophil count decreased [Recovered/Resolved]
